FAERS Safety Report 4414200-8 (Version None)
Quarter: 2004Q2

REPORT INFORMATION
  Report Type: 
  Country: None (occurrence: None)
  Receive Date: 20040630
  Receipt Date: 20040524
  Transmission Date: 20050107
  Serious: No
  Sender: FDA-Public Use
  Company Number: 04P-163-0261856-00

PATIENT
  Age: 62 Year
  Sex: Female
  Weight: 108.8633 kg

DRUGS (8)
  1. HUMIRA [Suspect]
     Indication: RHEUMATOID ARTHRITIS
     Dosage: 40 MG, 1 IN 2 WK, SUBCUTANEOUS
     Route: 058
     Dates: start: 20040421, end: 20040429
  2. HUMIRA [Suspect]
     Indication: RHEUMATOID ARTHRITIS
     Dosage: 40 MG, 1 IN 2 WK, SUBCUTANEOUS
     Route: 058
     Dates: start: 20040524
  3. METOPROLOL SUCCINATE [Concomitant]
  4. METHYLPREDNISOLONE [Concomitant]
  5. HYDROCHLOROTHIAZIDE [Concomitant]
  6. CELECOXIB [Concomitant]
  7. LEVOTHYROXINE SODIUM [Concomitant]
  8. LANSOPRAZOLE [Concomitant]

REACTIONS (3)
  - INFLUENZA [None]
  - INJECTION SITE STINGING [None]
  - URINARY TRACT INFECTION [None]
